FAERS Safety Report 6120989-2 (Version None)
Quarter: 2009Q1

REPORT INFORMATION
  Report Type: 
  Country: None (occurrence: None)
  Receive Date: 20090312
  Receipt Date: 20090312
  Transmission Date: 20090719
  Serious: Yes (Hospitalization)
  Sender: FDA-Public Use
  Company Number: None

PATIENT
  Age: 66 Year
  Sex: Male
  Weight: 103.4 kg

DRUGS (1)
  1. EZETIMIBE [Suspect]
     Indication: HYPERLIPIDAEMIA
     Dosage: 10 MG EVERY DAY PO
     Route: 048
     Dates: start: 20060821, end: 20080903

REACTIONS (12)
  - ANGINA PECTORIS [None]
  - ARTHRALGIA [None]
  - BRADYCARDIA [None]
  - CHEST PAIN [None]
  - DIZZINESS [None]
  - DYSPNOEA [None]
  - HYPOAESTHESIA [None]
  - MUSCULOSKELETAL PAIN [None]
  - MYALGIA [None]
  - PAIN [None]
  - PARAESTHESIA [None]
  - SENSATION OF HEAVINESS [None]
